FAERS Safety Report 9796439 (Version 3)
Quarter: 2014Q2

REPORT INFORMATION
  Report Type: Report from Study
  Country: JP (occurrence: JP)
  Receive Date: 20140103
  Receipt Date: 20140523
  Transmission Date: 20141212
  Serious: Yes (Other)
  Sender: FDA-Public Use
  Company Number: JP-009507513-1312JPN012191

PATIENT
  Age: 43 Year
  Sex: Female
  Weight: 46 kg

DRUGS (3)
  1. GANIREST [Suspect]
     Indication: PREVENTION OF PREMATURE OVULATION
     Dosage: 0.25 MG, QD
     Route: 058
     Dates: start: 20091203, end: 20091206
  2. FOLLISTIM [Concomitant]
     Indication: IN VITRO FERTILISATION
     Dosage: TOTAL DAILY DOSE 225 (UNDER 1000 UNIT), QD
     Route: 030
     Dates: start: 20091126, end: 20091206
  3. PREGNYL 5000IU [Concomitant]
     Indication: OVULATION INDUCTION
     Dosage: 3 (THOUSAND-MILLION UNIT) DAILY, QD
     Route: 030
     Dates: start: 20091206, end: 20091206

REACTIONS (2)
  - Abortion missed [Recovered/Resolved]
  - Maternal exposure before pregnancy [Recovered/Resolved]
